FAERS Safety Report 13946736 (Version 1)
Quarter: 2017Q3

REPORT INFORMATION
  Report Type: Spontaneous
  Country: US (occurrence: US)
  Receive Date: 20170907
  Receipt Date: 20170907
  Transmission Date: 20171128
  Serious: Yes (Life-Threatening, Other)
  Sender: FDA-Public Use
  Company Number: US-TEVA-804224USA

PATIENT
  Sex: Male

DRUGS (1)
  1. AMIODARONE [Suspect]
     Active Substance: AMIODARONE
     Indication: ATRIAL FIBRILLATION
     Route: 065

REACTIONS (17)
  - Cough [Unknown]
  - Asthenia [Unknown]
  - Hepatic enzyme abnormal [Unknown]
  - Amnesia [Unknown]
  - Pulmonary hypertension [Unknown]
  - Lung disorder [Unknown]
  - Syncope [Unknown]
  - Hepatic function abnormal [Unknown]
  - Chest pain [Unknown]
  - Toxicity to various agents [Unknown]
  - Fatigue [Unknown]
  - Thyroid disorder [Unknown]
  - Hypothyroidism [Unknown]
  - Weight fluctuation [Unknown]
  - Off label use [Unknown]
  - Dyspnoea [Unknown]
  - Adverse event [Unknown]
